FAERS Safety Report 14053788 (Version 1)
Quarter: 2017Q4

REPORT INFORMATION
  Report Type: Spontaneous
  Country: US (occurrence: None)
  Receive Date: 20171005
  Receipt Date: 20171005
  Transmission Date: 20180321
  Serious: Yes (Hospitalization)
  Sender: FDA-Public Use
  Company Number: None

PATIENT
  Age: 53 Year
  Sex: Female

DRUGS (1)
  1. APIXABAN 5 MG BRISTOL MYERS SQUIBB CO [Suspect]
     Active Substance: APIXABAN
     Indication: DEEP VEIN THROMBOSIS
     Route: 048

REACTIONS (4)
  - Tachycardia [None]
  - Pyrexia [None]
  - Sepsis [None]
  - Leukocytosis [None]

NARRATIVE: CASE EVENT DATE: 20170706
